FAERS Safety Report 9849112 (Version 1)
Quarter: 2013Q4

REPORT INFORMATION
  Report Type: Spontaneous
  Country: US (occurrence: None)
  Receive Date: 20131226
  Receipt Date: 20131226
  Transmission Date: 20140711
  Serious: Yes (Other)
  Sender: FDA-Public Use
  Company Number: PHEH2012US019669

PATIENT
  Sex: Female
  Weight: 102.8 kg

DRUGS (3)
  1. ZOMETA (ZOLEDRONATE) UNKNOWN [Suspect]
  2. FEMARA (LETROZOLE) UNKNOWN [Suspect]
     Dates: start: 20090211, end: 201203
  3. AROMASIN (EXEMESTANE) [Concomitant]

REACTIONS (4)
  - Disease progression [None]
  - Asthenia [None]
  - Visual impairment [None]
  - Blood creatine increased [None]
